FAERS Safety Report 5622050-X (Version None)
Quarter: 2008Q1

REPORT INFORMATION
  Report Type: 
  Country: None (occurrence: None)
  Receive Date: 20080211
  Receipt Date: 20080131
  Transmission Date: 20080703
  Serious: Yes (Hospitalization, Disabling)
  Sender: FDA-Public Use
  Company Number: US-ROCHE-408637

PATIENT
  Age: 21 Year
  Sex: Male
  Weight: 99.8 kg

DRUGS (5)
  1. ACCUTANE [Suspect]
     Indication: ACNE
     Route: 048
     Dates: start: 19950130, end: 19950601
  2. ACCUTANE [Suspect]
     Route: 048
     Dates: start: 19980901, end: 19981101
  3. ACCUTANE [Suspect]
     Route: 048
     Dates: start: 19980831, end: 19981201
  4. ACCUTANE [Suspect]
     Route: 048
     Dates: start: 19981201, end: 19990104
  5. ACCUTANE [Suspect]
     Route: 048
     Dates: start: 19990104, end: 19990201

REACTIONS (13)
  - ANAEMIA [None]
  - ARTHRALGIA [None]
  - COLITIS [None]
  - COLITIS ULCERATIVE [None]
  - DRY SKIN [None]
  - GASTROINTESTINAL DISORDER [None]
  - HEADACHE [None]
  - HYPOALBUMINAEMIA [None]
  - INFLAMMATORY BOWEL DISEASE [None]
  - PROCTITIS [None]
  - RADIUS FRACTURE [None]
  - RECTAL HAEMORRHAGE [None]
  - RETINAL DEGENERATION [None]
